FAERS Safety Report 7163834-9 (Version None)
Quarter: 2010Q4

REPORT INFORMATION
  Report Type: 
  Country: None (occurrence: None)
  Receive Date: 20101215
  Receipt Date: 20100618
  Transmission Date: 20110411
  Serious: Yes (Death, Hospitalization, Other)
  Sender: FDA-Public Use
  Company Number: US-PFIZER INC-2009288189

PATIENT
  Sex: Male
  Weight: 172.34 kg

DRUGS (8)
  1. LYRICA [Suspect]
     Indication: BACK PAIN
     Dosage: 100 MG, DAILY
     Route: 048
     Dates: start: 20090101
  2. LYRICA [Suspect]
     Indication: PAIN MANAGEMENT
  3. DILANTIN-125 [Suspect]
     Dosage: 700 MG, UNK
  4. CUMADIN [Concomitant]
     Indication: BLOOD DISORDER
     Dosage: UNK
  5. VICODIN [Concomitant]
     Indication: BACK PAIN
     Dosage: UNK
  6. OXYMORPHONE [Concomitant]
     Dosage: 40 MG, 3X/DAY
  7. ZOLOFT [Concomitant]
     Dosage: UNK
  8. XANAX [Concomitant]
     Dosage: UNK

REACTIONS (16)
  - CARDIOMYOPATHY [None]
  - CHEST DISCOMFORT [None]
  - CHEST PAIN [None]
  - CONVULSION [None]
  - DYSPNOEA [None]
  - HEADACHE [None]
  - LOCAL SWELLING [None]
  - MYOCARDIAL INFARCTION [None]
  - OEDEMA [None]
  - OEDEMA PERIPHERAL [None]
  - PAIN [None]
  - PARAESTHESIA [None]
  - PERICARDIAL DRAINAGE [None]
  - SWELLING FACE [None]
  - VISUAL ACUITY REDUCED [None]
  - WEIGHT INCREASED [None]
